FAERS Safety Report 22207426 (Version 1)
Quarter: 2023Q2

REPORT INFORMATION
  Report Type: Report from Study
  Country: DE (occurrence: DE)
  Receive Date: 20230413
  Receipt Date: 20230413
  Transmission Date: 20230722
  Serious: Yes (Hospitalization, Other)
  Sender: FDA-Public Use
  Company Number: DE-KYOWAKIRIN-2023BKK005435

PATIENT

DRUGS (58)
  1. POTELIGEO [Suspect]
     Active Substance: MOGAMULIZUMAB-KPKC
     Dosage: 83 MG (1 MG/KG CYCLE 1 DAY 1)
     Route: 065
     Dates: start: 20201208
  2. POTELIGEO [Suspect]
     Active Substance: MOGAMULIZUMAB-KPKC
     Dosage: 83 MG (1 MG/KG CYCLE 1 DAY 8)
     Route: 065
     Dates: start: 20201215
  3. POTELIGEO [Suspect]
     Active Substance: MOGAMULIZUMAB-KPKC
     Dosage: 83 MG (1 MG/KG CYCLE 1 DAY 15)
     Route: 065
     Dates: start: 20201222
  4. POTELIGEO [Suspect]
     Active Substance: MOGAMULIZUMAB-KPKC
     Dosage: 83 MG (1 MG/KG CYCLE 1 DAY 22)
     Route: 065
     Dates: start: 20210114
  5. POTELIGEO [Suspect]
     Active Substance: MOGAMULIZUMAB-KPKC
     Dosage: 77 MG (1 MG/KG CYCLE 2 DAY 1)
     Route: 065
     Dates: start: 20210121
  6. POTELIGEO [Suspect]
     Active Substance: MOGAMULIZUMAB-KPKC
     Dosage: 77 MG (1 MG/KG CYCLE 2 DAY 15)
     Route: 065
     Dates: start: 20210222
  7. POTELIGEO [Suspect]
     Active Substance: MOGAMULIZUMAB-KPKC
     Dosage: 72 MG (1 MG/KG CYCLE 3 DAY 1)
     Route: 065
     Dates: start: 20210528
  8. POTELIGEO [Suspect]
     Active Substance: MOGAMULIZUMAB-KPKC
     Dosage: 72 MG (1 MG/KG CYCLE 3 DAY 15)
     Route: 065
     Dates: start: 20210609
  9. POTELIGEO [Suspect]
     Active Substance: MOGAMULIZUMAB-KPKC
     Dosage: 77 MG (1 MG/KG CYCLE 4 DAY 1)
     Route: 065
     Dates: start: 20210621
  10. POTELIGEO [Suspect]
     Active Substance: MOGAMULIZUMAB-KPKC
     Dosage: 69 MG (1 MG/KG CYCLE 4 DAY 15)
     Route: 065
     Dates: start: 20210706
  11. POTELIGEO [Suspect]
     Active Substance: MOGAMULIZUMAB-KPKC
     Dosage: 67 MG (1 MG/KG CYCLE 5 DAY 1)
     Route: 065
     Dates: start: 20210720
  12. POTELIGEO [Suspect]
     Active Substance: MOGAMULIZUMAB-KPKC
     Dosage: 68 MG (1 MG/KG CYCLE 5 DAY 15)
     Route: 065
     Dates: start: 20210810
  13. POTELIGEO [Suspect]
     Active Substance: MOGAMULIZUMAB-KPKC
     Dosage: 68 MG (1 MG/KG CYCLE 6 DAY 1)
     Route: 065
     Dates: start: 20210824
  14. POTELIGEO [Suspect]
     Active Substance: MOGAMULIZUMAB-KPKC
     Dosage: 71 MG (1 MG/KG CYCLE 6 DAY 15)
     Route: 065
     Dates: start: 20210906
  15. POTELIGEO [Suspect]
     Active Substance: MOGAMULIZUMAB-KPKC
     Dosage: 69 MG (1 MG/KG CYCLE 7 DAY 1)
     Route: 065
     Dates: start: 20210921
  16. POTELIGEO [Suspect]
     Active Substance: MOGAMULIZUMAB-KPKC
     Dosage: 70 MG (1 MG/KG CYCLE 7 DAY 15)
     Route: 065
     Dates: start: 20211005
  17. POTELIGEO [Suspect]
     Active Substance: MOGAMULIZUMAB-KPKC
     Dosage: 70 MG (1 MG/KG CYCLE 8 DAY 1)
     Route: 065
     Dates: start: 20211019
  18. POTELIGEO [Suspect]
     Active Substance: MOGAMULIZUMAB-KPKC
     Dosage: 70 MG (1 MG/KG CYCLE 8 DAY 15)
     Route: 065
     Dates: start: 20211102
  19. POTELIGEO [Suspect]
     Active Substance: MOGAMULIZUMAB-KPKC
     Dosage: 70 MG  (1 MG/KG CYCLE 9 DAY 1)
     Route: 065
     Dates: start: 20211116
  20. POTELIGEO [Suspect]
     Active Substance: MOGAMULIZUMAB-KPKC
     Dosage: 70 MG (1 MG/KG CYCLE 9 DAY 15)
     Route: 065
     Dates: start: 20211130
  21. POTELIGEO [Suspect]
     Active Substance: MOGAMULIZUMAB-KPKC
     Dosage: 70 MG (1 MG/KG CYCLE 10 DAY 1)
     Route: 065
     Dates: start: 20211215
  22. POTELIGEO [Suspect]
     Active Substance: MOGAMULIZUMAB-KPKC
     Dosage: 70 MG (1 MG/KG CYCLE 10 DAY 15)
     Route: 065
     Dates: start: 20211229
  23. POTELIGEO [Suspect]
     Active Substance: MOGAMULIZUMAB-KPKC
     Dosage: 70 MG (1 MG/KG CYCLE 11 DAY 1)
     Route: 065
     Dates: start: 20220117
  24. POTELIGEO [Suspect]
     Active Substance: MOGAMULIZUMAB-KPKC
     Dosage: 73 MG (1 MG/KG CYCLE 11 DAY 15)
     Route: 065
     Dates: start: 20220131
  25. POTELIGEO [Suspect]
     Active Substance: MOGAMULIZUMAB-KPKC
     Dosage: 73 MG (1 MG/KG CYCLE 12 DAY 1)
     Route: 065
     Dates: start: 20220214
  26. POTELIGEO [Suspect]
     Active Substance: MOGAMULIZUMAB-KPKC
     Dosage: 73 MG (1 MG/KG CYCLE 12 DAY 15)
     Route: 065
     Dates: start: 20220228
  27. POTELIGEO [Suspect]
     Active Substance: MOGAMULIZUMAB-KPKC
     Dosage: 72 MG (1 MG/KG CYCLE 13 DAY 1)
     Route: 065
     Dates: start: 20220314
  28. POTELIGEO [Suspect]
     Active Substance: MOGAMULIZUMAB-KPKC
     Dosage: 72 MG (1 MG/KG CYCLE 13 DAY 15)
     Route: 065
     Dates: start: 20220401
  29. POTELIGEO [Suspect]
     Active Substance: MOGAMULIZUMAB-KPKC
     Dosage: 72 MG (1 MG/KG CYCLE 14 DAY 1)
     Route: 065
     Dates: start: 20220414
  30. POTELIGEO [Suspect]
     Active Substance: MOGAMULIZUMAB-KPKC
     Dosage: 72 MG (1 MG/KG CYCLE 14 DAY 15)
     Route: 065
     Dates: start: 20220428
  31. POTELIGEO [Suspect]
     Active Substance: MOGAMULIZUMAB-KPKC
     Dosage: 72 MG (1 MG/KG CYCLE 15 DAY 1)
     Route: 065
     Dates: start: 20220512
  32. POTELIGEO [Suspect]
     Active Substance: MOGAMULIZUMAB-KPKC
     Dosage: 70 MG (1 MG/KG CYCLE 15 DAY 15)
     Route: 065
     Dates: start: 20220524
  33. POTELIGEO [Suspect]
     Active Substance: MOGAMULIZUMAB-KPKC
     Dosage: 70 MG (1 MG/KG CYCLE 16 DAY 1)
     Route: 065
     Dates: start: 20220607
  34. POTELIGEO [Suspect]
     Active Substance: MOGAMULIZUMAB-KPKC
     Dosage: 70 MG (1 MG/KG CYCLE 16 DAY 15)
     Route: 065
     Dates: start: 20220621
  35. POTELIGEO [Suspect]
     Active Substance: MOGAMULIZUMAB-KPKC
     Dosage: 70 MG (1 MG/KG CYCLE 17 DAY 1)
     Route: 065
     Dates: start: 20220704
  36. POTELIGEO [Suspect]
     Active Substance: MOGAMULIZUMAB-KPKC
     Dosage: 70 MG (1 MG/KG CYCLE 17 DAY 15)
     Route: 065
     Dates: start: 20220718
  37. POTELIGEO [Suspect]
     Active Substance: MOGAMULIZUMAB-KPKC
     Dosage: 70 MG (1 MG/KG CYCLE 18 DAY 1)
     Route: 065
     Dates: start: 20220801
  38. POTELIGEO [Suspect]
     Active Substance: MOGAMULIZUMAB-KPKC
     Dosage: 65 MG (1 MG/KG CYCLE 18 DAY 15)
     Route: 065
     Dates: start: 20220815
  39. POTELIGEO [Suspect]
     Active Substance: MOGAMULIZUMAB-KPKC
     Dosage: 72.8 MG (1 MG/KG CYCLE 24 DAY 1)
     Route: 065
     Dates: start: 20230124
  40. POTELIGEO [Suspect]
     Active Substance: MOGAMULIZUMAB-KPKC
     Dosage: 72.8 MG (1 MG/KG CYCLE 24 DAY 15)
     Route: 065
     Dates: start: 20230208
  41. POTELIGEO [Suspect]
     Active Substance: MOGAMULIZUMAB-KPKC
     Dosage: 72 MG (1 MG/KG CYCLE 25 DAY 1)
     Route: 065
     Dates: start: 20230221
  42. POTELIGEO [Suspect]
     Active Substance: MOGAMULIZUMAB-KPKC
     Dosage: 72 MG (1 MG/KG CYCLE 25 DAY 15)
     Route: 065
     Dates: start: 20230307
  43. POTELIGEO [Suspect]
     Active Substance: MOGAMULIZUMAB-KPKC
     Dosage: 72 MG (1 MG/KG CYCLE 26 DAY 1)
     Route: 065
     Dates: start: 20230321
  44. ASPIRIN [Concomitant]
     Active Substance: ASPIRIN
     Indication: Product used for unknown indication
     Dosage: 100 MG, QD
     Route: 065
  45. PRASUGREL [Concomitant]
     Active Substance: PRASUGREL
     Indication: Product used for unknown indication
     Dosage: 10 MG, QD
     Route: 065
     Dates: start: 20200921, end: 20211116
  46. PANTOPRAZOLE [Concomitant]
     Active Substance: PANTOPRAZOLE
     Indication: Product used for unknown indication
     Dosage: 40 MG, QD
     Route: 065
     Dates: end: 20211129
  47. PANTOPRAZOLE [Concomitant]
     Active Substance: PANTOPRAZOLE
     Dosage: 20 MG, QD
     Route: 065
     Dates: start: 20211130
  48. BISOPROLOL [Concomitant]
     Active Substance: BISOPROLOL
     Indication: Product used for unknown indication
     Dosage: 2.5 MG, QD
     Route: 065
  49. ATORVASTATIN [Concomitant]
     Active Substance: ATORVASTATIN
     Indication: Product used for unknown indication
     Dosage: 20 MG, QD
     Route: 065
  50. GABAPENTIN [Concomitant]
     Active Substance: GABAPENTIN
     Indication: Product used for unknown indication
     Dosage: 300 MG, BID
     Route: 065
     Dates: start: 20201228, end: 20211129
  51. ENOXAPARIN SODIUM [Concomitant]
     Active Substance: ENOXAPARIN SODIUM
     Indication: Product used for unknown indication
     Dosage: 40 MG, QD
     Route: 065
     Dates: end: 20201227
  52. CANDESARTAN [Concomitant]
     Active Substance: CANDESARTAN
     Indication: Product used for unknown indication
     Dosage: 4 MG, QD
     Route: 065
     Dates: end: 20201227
  53. BUDESONIDE [Concomitant]
     Active Substance: BUDESONIDE
     Indication: Product used for unknown indication
     Dosage: 3 MG, TID
     Route: 065
     Dates: start: 20210517
  54. URSONORM [Concomitant]
     Indication: Product used for unknown indication
     Dosage: 200 MG, QD
     Route: 065
     Dates: start: 20210517
  55. URSONORM [Concomitant]
     Dosage: 500 MG, BID
     Route: 065
     Dates: start: 20210517
  56. IBUPROFEN [Concomitant]
     Active Substance: IBUPROFEN
     Indication: Product used for unknown indication
     Dosage: 600 MG
     Route: 065
     Dates: start: 20211130, end: 20230101
  57. TAMSULOSIN [Concomitant]
     Active Substance: TAMSULOSIN
     Indication: Product used for unknown indication
     Dosage: 0.4 MG, QD
     Route: 065
     Dates: start: 20211130
  58. LOSARTAN POTASSIUM [Concomitant]
     Active Substance: LOSARTAN POTASSIUM
     Indication: Product used for unknown indication
     Dosage: 8 MG, QD
     Route: 065
     Dates: start: 20230110

REACTIONS (1)
  - Drug-induced liver injury [Recovered/Resolved]

NARRATIVE: CASE EVENT DATE: 20210222
